FAERS Safety Report 14769588 (Version 1)
Quarter: 2018Q2

REPORT INFORMATION
  Report Type: Spontaneous
  Country: US (occurrence: US)
  Receive Date: 20180417
  Receipt Date: 20180417
  Transmission Date: 20180711
  Serious: Yes (Hospitalization)
  Sender: FDA-Public Use
  Company Number: US-BAYER-2018-068749

PATIENT
  Sex: Male
  Weight: 86 kg

DRUGS (4)
  1. ALKA-SELTZER PLUS DAY AND NIGHT MULTI-SYMPTOM COLD AND FLU FORMULA [Suspect]
     Active Substance: ACETAMINOPHEN\DEXTROMETHORPHAN HYDROBROMIDE\DOXYLAMINE SUCCINATE\PHENYLEPHRINE
     Indication: NASOPHARYNGITIS
     Dosage: UNK
     Route: 048
     Dates: start: 20180406, end: 20180406
  2. ALKA-SELTZER PLUS DAY AND NIGHT MULTI-SYMPTOM COLD AND FLU FORMULA [Suspect]
     Active Substance: ACETAMINOPHEN\DEXTROMETHORPHAN HYDROBROMIDE\DOXYLAMINE SUCCINATE\PHENYLEPHRINE
     Indication: HYPERSENSITIVITY
  3. ALKA-SELTZER EFFERVESCENT COLD [Suspect]
     Active Substance: ACETAMINOPHEN\CHLORPHENIRAMINE\DEXTROMETHORPHAN\PHENYLEPHRINE
     Indication: NASOPHARYNGITIS
     Dosage: UNK
     Route: 048
     Dates: start: 20180407, end: 20180407
  4. ALKA-SELTZER EFFERVESCENT COLD [Suspect]
     Active Substance: ACETAMINOPHEN\CHLORPHENIRAMINE\DEXTROMETHORPHAN\PHENYLEPHRINE
     Indication: HYPERSENSITIVITY

REACTIONS (4)
  - Hospitalisation [Not Recovered/Not Resolved]
  - Neurological symptom [Not Recovered/Not Resolved]
  - Confusional state [Not Recovered/Not Resolved]
  - Drug-disease interaction [None]

NARRATIVE: CASE EVENT DATE: 20180408
